FAERS Safety Report 11715291 (Version 1)
Quarter: 2015Q4

REPORT INFORMATION
  Report Type: Spontaneous
  Country: JP (occurrence: JP)
  Receive Date: 20151109
  Receipt Date: 20151109
  Transmission Date: 20160304
  Serious: Yes (Life-Threatening)
  Sender: FDA-Public Use
  Company Number: JP-ARBOR PHARMACEUTICALS, LLC-JP-2015ARB002442

PATIENT
  Age: 64 Year
  Sex: Male

DRUGS (1)
  1. GLIADEL [Suspect]
     Active Substance: CARMUSTINE
     Indication: GLIOMA
     Dosage: 7.7 MG, 8 TOTAL

REACTIONS (1)
  - Infection [Recovered/Resolved]
